FAERS Safety Report 21598264 (Version 1)
Quarter: 2022Q4

REPORT INFORMATION
  Report Type: Spontaneous
  Country: US (occurrence: US)
  Receive Date: 20221115
  Receipt Date: 20221115
  Transmission Date: 20230113
  Serious: No
  Sender: FDA-Public Use
  Company Number: US-TARO PHARMACEUTICALS USA INC.-2022TAR00347

PATIENT

DRUGS (2)
  1. MUPIROCIN [Suspect]
     Active Substance: MUPIROCIN
     Indication: Impetigo
     Dosage: UNK UNK, TID
     Route: 061
     Dates: start: 20220125, end: 20220209
  2. MUPIROCIN [Suspect]
     Active Substance: MUPIROCIN
     Dosage: UNK
     Route: 061
     Dates: start: 20220217

REACTIONS (2)
  - Disease recurrence [Not Recovered/Not Resolved]
  - Off label use [Unknown]

NARRATIVE: CASE EVENT DATE: 20220125
